FAERS Safety Report 5867621-0 (Version None)
Quarter: 2008Q3

REPORT INFORMATION
  Report Type: 
  Country: None (occurrence: None)
  Receive Date: 20080902
  Receipt Date: 20080325
  Transmission Date: 20090109
  Serious: Yes (Congenital Anomaly)
  Sender: FDA-Public Use
  Company Number: BR-ROCHE-583381

PATIENT
  Sex: Female

DRUGS (1)
  1. ROACUTAN [Suspect]
     Indication: DRUG USE FOR UNKNOWN INDICATION
     Route: 064

REACTIONS (2)
  - EAR MALFORMATION [None]
  - VISUAL IMPAIRMENT [None]
